FAERS Safety Report 7938923-9 (Version None)
Quarter: 2011Q4

REPORT INFORMATION
  Report Type: 
  Country: None (occurrence: None)
  Receive Date: 20111124
  Receipt Date: 20111122
  Transmission Date: 20120403
  Serious: Yes (Hospitalization, Other)
  Sender: FDA-Public Use
  Company Number: GR-BRISTOL-MYERS SQUIBB COMPANY-16226458

PATIENT
  Age: 57 Year
  Sex: Male

DRUGS (7)
  1. LASIX [Concomitant]
     Dates: start: 20111010
  2. FILICINE [Concomitant]
     Dates: start: 20111010
  3. RABEPRAZOLE SODIUM [Concomitant]
     Dates: start: 20111010
  4. INDERAL [Concomitant]
     Dosage: F.C.TAB.
     Dates: start: 20111010
  5. ALDACTONE [Concomitant]
     Dates: start: 20111010
  6. ZYPREXA [Concomitant]
     Dates: start: 20111010
  7. BARACLUDE [Suspect]
     Indication: HEPATITIS B
     Dosage: INTERRUPTED 4-5 MONTHS AGO RESTARTED:OCT2011.
     Route: 048
     Dates: start: 20080101, end: 20110101

REACTIONS (6)
  - ALANINE AMINOTRANSFERASE INCREASED [None]
  - RENAL DISORDER [None]
  - THROMBOCYTOPENIA [None]
  - ASCITES [None]
  - SPLENOMEGALY [None]
  - ASPARTATE AMINOTRANSFERASE INCREASED [None]
